FAERS Safety Report 14791137 (Version 2)
Quarter: 2018Q2

REPORT INFORMATION
  Report Type: Spontaneous
  Country: JP (occurrence: JP)
  Receive Date: 20180423
  Receipt Date: 20180531
  Transmission Date: 20180711
  Serious: Yes (Life-Threatening, Hospitalization)
  Sender: FDA-Public Use
  Company Number: JP-BAYER-2018-075595

PATIENT
  Sex: Female

DRUGS (11)
  1. METHYLEPHEDRINE HYDROCHLORIDE-DL [Suspect]
     Active Substance: METHYLEPHEDRINE HYDROCHLORIDE, (+/-)-
     Dosage: 400 MG, QD
     Route: 065
  2. GARENOXACIN [Concomitant]
     Active Substance: GARENOXACIN
     Dosage: 400 MG, QD
  3. DEXAMETHASONE. [Suspect]
     Active Substance: DEXAMETHASONE
     Dosage: 4 MG, QD
     Route: 048
  4. METHYLEPHEDRINE HYDROCHLORIDE-DL [Suspect]
     Active Substance: METHYLEPHEDRINE HYDROCHLORIDE, (+/-)-
     Dosage: 75 MG, QD
     Route: 065
  5. CHLORPHENIRAMINE MALEATE. [Suspect]
     Active Substance: CHLORPHENIRAMINE MALEATE
     Dosage: 4 MG, QD
  6. CHLORPHENIRAMINE MALEATE. [Suspect]
     Active Substance: CHLORPHENIRAMINE MALEATE
     Dosage: UNK
     Route: 048
  7. CHLORPHENIRAMINE MALEATE. [Suspect]
     Active Substance: CHLORPHENIRAMINE MALEATE
     Dosage: UNK
     Route: 048
  8. CHLORPHENIRAMINE MALEATE. [Suspect]
     Active Substance: CHLORPHENIRAMINE MALEATE
     Dosage: UNK
     Route: 048
  9. METHYLEPHEDRINE HYDROCHLORIDE-DL [Suspect]
     Active Substance: METHYLEPHEDRINE HYDROCHLORIDE, (+/-)-
     Dosage: 60 MG, QD
     Route: 065
  10. CODEINE PHOSPHATE [Concomitant]
     Active Substance: CODEINE PHOSPHATE
     Dosage: 60 MG, QD
     Route: 048
  11. BUDESONIDE W/FORMOTEROL FUMARATE [Suspect]
     Active Substance: BUDESONIDE\FORMOTEROL FUMARATE
     Dosage: 2 DF, QD
     Route: 048

REACTIONS (1)
  - Loss of consciousness [Recovered/Resolved]
